FAERS Safety Report 4650006-2 (Version None)
Quarter: 2005Q2

REPORT INFORMATION
  Report Type: 
  Country: None (occurrence: None)
  Receive Date: 20050502
  Receipt Date: 20040827
  Transmission Date: 20051028
  Serious: Yes (Hospitalization)
  Sender: FDA-Public Use
  Company Number: BR-ROCHE-379072

PATIENT
  Sex: Male
  Weight: 3.3 kg

DRUGS (3)
  1. ROACUTAN [Suspect]
     Indication: ACNE
     Dates: start: 20040615, end: 20040705
  2. ROACUTAN [Suspect]
     Dates: start: 20040215, end: 20040615
  3. GYNERA [Concomitant]
     Indication: CONTRACEPTION
     Dates: start: 20030615, end: 20040715

REACTIONS (5)
  - CAESAREAN SECTION [None]
  - DRUG EXPOSURE DURING PREGNANCY [None]
  - PREMATURE BABY [None]
  - RESPIRATORY DISORDER [None]
  - RESPIRATORY DISORDER NEONATAL [None]
